FAERS Safety Report 18961804 (Version 1)
Quarter: 2021Q1

REPORT INFORMATION
  Report Type: Spontaneous
  Country: CN (occurrence: CN)
  Receive Date: 20210303
  Receipt Date: 20210303
  Transmission Date: 20210420
  Serious: Yes (Hospitalization)
  Sender: FDA-Public Use
  Company Number: CN-ROCHE-2781076

PATIENT
  Age: 61 Year
  Sex: Female

DRUGS (3)
  1. AVASTIN [Suspect]
     Active Substance: BEVACIZUMAB
     Indication: OVARIAN CANCER RECURRENT
     Route: 041
     Dates: start: 20210222
  2. OXALIPLATIN. [Concomitant]
     Active Substance: OXALIPLATIN
     Indication: OVARIAN CANCER RECURRENT
     Route: 041
     Dates: start: 20210222
  3. GEMCITABINE HYDROCHLORIDE. [Concomitant]
     Active Substance: GEMCITABINE HYDROCHLORIDE
     Indication: OVARIAN CANCER RECURRENT
     Route: 041
     Dates: start: 20210222

REACTIONS (3)
  - Intentional product use issue [Unknown]
  - Off label use [Unknown]
  - Leukopenia [Not Recovered/Not Resolved]

NARRATIVE: CASE EVENT DATE: 20210226
